FAERS Safety Report 10330679 (Version 1)
Quarter: 2014Q3

REPORT INFORMATION
  Report Type: Spontaneous
  Country: US (occurrence: None)
  Receive Date: 20140718
  Receipt Date: 20140718
  Transmission Date: 20150326
  Serious: No
  Sender: FDA-Public Use
  Company Number: None

PATIENT
  Age: 48 Year
  Sex: Male
  Weight: 108.86 kg

DRUGS (1)
  1. HYDROCORTISONE 5 MG QUALITEST [Suspect]
     Active Substance: HYDROCORTISONE
     Indication: ADRENAL INSUFFICIENCY
     Route: 048
     Dates: start: 20140701, end: 20140717

REACTIONS (2)
  - Reaction to drug excipients [None]
  - Abdominal discomfort [None]

NARRATIVE: CASE EVENT DATE: 20140716
